FAERS Safety Report 12328648 (Version 1)
Quarter: 2016Q2

REPORT INFORMATION
  Report Type: Spontaneous
  Country: US (occurrence: US)
  Receive Date: 20160503
  Receipt Date: 20160503
  Transmission Date: 20160815
  Serious: No
  Sender: FDA-Public Use
  Company Number: US-BEH-2015049872

PATIENT
  Age: 59 Year
  Sex: Female
  Weight: 84.8 kg

DRUGS (26)
  1. HIZENTRA [Suspect]
     Active Substance: HUMAN IMMUNOGLOBULIN G
     Indication: IMMUNODEFICIENCY COMMON VARIABLE
     Dosage: ??-???-2012
     Route: 058
  2. LIDOCAINE/PRILOCAINE [Concomitant]
  3. SOMA [Concomitant]
     Active Substance: CARISOPRODOL
  4. PREDNISONE. [Concomitant]
     Active Substance: PREDNISONE
  5. GLUCOPHAGE [Concomitant]
     Active Substance: METFORMIN HYDROCHLORIDE
  6. DIPHENHYDRAMINE. [Concomitant]
     Active Substance: DIPHENHYDRAMINE
  7. EXELON [Concomitant]
     Active Substance: RIVASTIGMINE TARTRATE
  8. LASIX [Concomitant]
     Active Substance: FUROSEMIDE
  9. XANAX [Concomitant]
     Active Substance: ALPRAZOLAM
  10. SPIRIVA [Concomitant]
     Active Substance: TIOTROPIUM BROMIDE MONOHYDRATE
  11. DULERA [Concomitant]
     Active Substance: FORMOTEROL FUMARATE DIHYDRATE\MOMETASONE FUROATE
  12. ALBUTEROL. [Concomitant]
     Active Substance: ALBUTEROL
  13. IBUPROFEN. [Concomitant]
     Active Substance: IBUPROFEN
  14. PLAVIX [Concomitant]
     Active Substance: CLOPIDOGREL BISULFATE
  15. NORCO [Concomitant]
     Active Substance: ACETAMINOPHEN\HYDROCODONE BITARTRATE
  16. LMX [Concomitant]
     Active Substance: LIDOCAINE
  17. SAVELLA [Concomitant]
     Active Substance: MILNACIPRAN HYDROCHLORIDE
  18. EPIPEN [Concomitant]
     Active Substance: EPINEPHRINE
  19. PROAIR HFA [Concomitant]
     Active Substance: ALBUTEROL SULFATE
  20. PROMETHAZINE [Concomitant]
     Active Substance: PROMETHAZINE\PROMETHAZINE HYDROCHLORIDE
  21. TRAZODONE [Concomitant]
     Active Substance: TRAZODONE HYDROCHLORIDE
  22. POTASSIUM [Concomitant]
     Active Substance: POTASSIUM
  23. SINGULAIR [Concomitant]
     Active Substance: MONTELUKAST SODIUM
  24. COREG [Concomitant]
     Active Substance: CARVEDILOL
  25. ZOCOR [Concomitant]
     Active Substance: SIMVASTATIN
  26. LEXAPRO [Concomitant]
     Active Substance: ESCITALOPRAM OXALATE

REACTIONS (2)
  - Dizziness [Recovered/Resolved]
  - Unevaluable event [Recovered/Resolved]

NARRATIVE: CASE EVENT DATE: 201412
